FAERS Safety Report 12678206 (Version 1)
Quarter: 2016Q3

REPORT INFORMATION
  Report Type: Spontaneous
  Country: AU (occurrence: AU)
  Receive Date: 20160823
  Receipt Date: 20160823
  Transmission Date: 20161109
  Serious: Yes (Life-Threatening, Hospitalization)
  Sender: FDA-Public Use
  Company Number: AU-MYLANLABS-2016M1035302

PATIENT

DRUGS (8)
  1. DEXMEDETOMIDINE. [Suspect]
     Active Substance: DEXMEDETOMIDINE
     Indication: DRUG WITHDRAWAL SYNDROME
     Dosage: 1 MICROG/KG/H WHICH WAS REDUCED TO 0.4MICROG/KG/H
     Route: 050
  2. MORPHINE [Suspect]
     Active Substance: MORPHINE
     Route: 041
  3. PROPOFOL. [Suspect]
     Active Substance: PROPOFOL
     Indication: DRUG WITHDRAWAL SYNDROME
     Route: 065
  4. CLONIDINE. [Suspect]
     Active Substance: CLONIDINE
     Dosage: TWICE A DAY
     Route: 048
  5. CLONIDINE. [Suspect]
     Active Substance: CLONIDINE
     Route: 042
  6. CLONIDINE. [Suspect]
     Active Substance: CLONIDINE
     Indication: PRODUCT USED FOR UNKNOWN INDICATION
     Route: 037
  7. MIDAZOLAM [Suspect]
     Active Substance: MIDAZOLAM\MIDAZOLAM HYDROCHLORIDE
     Indication: DRUG WITHDRAWAL SYNDROME
     Route: 065
  8. MORPHINE [Suspect]
     Active Substance: MORPHINE
     Indication: PRODUCT USED FOR UNKNOWN INDICATION
     Route: 037

REACTIONS (5)
  - Hypotension [Recovered/Resolved]
  - Withdrawal syndrome [Recovered/Resolved]
  - Sinus tachycardia [Recovered/Resolved]
  - Delirium [Recovered/Resolved]
  - Blood pressure increased [Recovered/Resolved]
